FAERS Safety Report 7421199-9 (Version None)
Quarter: 2011Q2

REPORT INFORMATION
  Report Type: 
  Country: None (occurrence: None)
  Receive Date: 20110418
  Receipt Date: 20110407
  Transmission Date: 20111010
  Serious: Yes (Other)
  Sender: FDA-Public Use
  Company Number: US-ASTRAZENECA-2011SE19947

PATIENT
  Age: 506 Month
  Sex: Female

DRUGS (5)
  1. VELCADE [Suspect]
     Indication: MULTIPLE MYELOMA
     Dosage: 1.3MG/ME2, CYCLIC ON DAYS 1, 4, 8 AND 11 OF A 21-DAY CYCLE
     Route: 040
     Dates: start: 20110307, end: 20110317
  2. REVLIMID [Suspect]
     Indication: MULTIPLE MYELOMA
     Dosage: 25MG, CYCLIC, DAILY ON DAYS 1-14 OF 21 DAY CYCLE
     Route: 048
     Dates: start: 20110307, end: 20110320
  3. DEXAMETHASONE [Suspect]
     Indication: MULTIPLE MYELOMA
     Dosage: 20MG CYCLIC ON DAY 1, 2, 4, 5, 8, 9, 11 AND 12 OF A 21 DAY CYCLE
     Route: 048
     Dates: start: 20110307, end: 20110318
  4. ASPIRIN [Concomitant]
  5. ZESTORETIC [Suspect]
     Route: 048

REACTIONS (1)
  - HYPOKALAEMIA [None]
